FAERS Safety Report 13160417 (Version 3)
Quarter: 2017Q3

REPORT INFORMATION
  Report Type: Report from Study
  Country: JP (occurrence: JP)
  Receive Date: 20170127
  Receipt Date: 20170701
  Transmission Date: 20171127
  Serious: Yes (Death, Hospitalization, Other)
  Sender: FDA-Public Use
  Company Number: JP-AMGEN-JPNNI2017014562

PATIENT
  Age: 77 Year
  Sex: Male

DRUGS (32)
  1. CARFILZOMIB [Suspect]
     Active Substance: CARFILZOMIB
     Dosage: 23 MG/M2, UNK
     Route: 041
     Dates: start: 20161219, end: 20161220
  2. DEXAMETHASONE. [Concomitant]
     Active Substance: DEXAMETHASONE
     Dosage: 40 MG, UNK
     Dates: start: 20161006
  3. DEXAMETHASONE. [Concomitant]
     Active Substance: DEXAMETHASONE
     Dosage: 40 MG, UNK
     Dates: start: 20161107
  4. DEXAMETHASONE. [Concomitant]
     Active Substance: DEXAMETHASONE
     Dosage: 20 MG, UNK
     Dates: start: 20161212
  5. DEXAMETHASONE. [Concomitant]
     Active Substance: DEXAMETHASONE
     Dosage: 40 MG, UNK
     Dates: start: 20161219
  6. CARFILZOMIB [Suspect]
     Active Substance: CARFILZOMIB
     Indication: PLASMA CELL MYELOMA
     Dosage: 11 MG/M2, UNK
     Route: 041
     Dates: start: 20160929, end: 20160929
  7. CARFILZOMIB [Suspect]
     Active Substance: CARFILZOMIB
     Dosage: 23 MG/M2, UNK
     Route: 041
     Dates: start: 20161012, end: 20161013
  8. CARFILZOMIB [Suspect]
     Active Substance: CARFILZOMIB
     Dosage: 23 MG/M2, UNK
     Route: 041
     Dates: start: 20161121, end: 20161122
  9. CARFILZOMIB [Suspect]
     Active Substance: CARFILZOMIB
     Dosage: 23 MG/M2, UNK
     Route: 041
     Dates: start: 20161226, end: 20161227
  10. CARFILZOMIB [Suspect]
     Active Substance: CARFILZOMIB
     Dosage: 23 MG/M2, UNK
     Route: 041
     Dates: start: 20170104, end: 20170105
  11. CARFILZOMIB [Suspect]
     Active Substance: CARFILZOMIB
     Dosage: 23 MG/M2, UNK
     Route: 041
     Dates: start: 20161107, end: 20161108
  12. CARFILZOMIB [Suspect]
     Active Substance: CARFILZOMIB
     Dosage: 23 MG/M2, UNK
     Route: 041
     Dates: start: 20161128, end: 20161129
  13. DEXAMETHASONE. [Concomitant]
     Active Substance: DEXAMETHASONE
     Dosage: 40 MG, UNK
     Dates: start: 20161031
  14. DEXAMETHASONE. [Concomitant]
     Active Substance: DEXAMETHASONE
     Dosage: 40 MG, UNK
     Dates: start: 20161205
  15. LENALIDOMIDE [Concomitant]
     Active Substance: LENALIDOMIDE
     Dosage: UNK
     Dates: start: 20160929, end: 20161019
  16. DEXAMETHASONE. [Concomitant]
     Active Substance: DEXAMETHASONE
     Dosage: 40 MG, UNK
     Dates: start: 20161012
  17. DEXAMETHASONE. [Concomitant]
     Active Substance: DEXAMETHASONE
     Dosage: 40 MG, UNK
     Dates: start: 20161226
  18. DEXAMETHASONE. [Concomitant]
     Active Substance: DEXAMETHASONE
     Dosage: 20 MG, UNK
     Dates: start: 20170111
  19. CARFILZOMIB [Suspect]
     Active Substance: CARFILZOMIB
     Dosage: 23 MG/M2, UNK
     Route: 041
     Dates: start: 20161024, end: 20161025
  20. LENALIDOMIDE [Concomitant]
     Active Substance: LENALIDOMIDE
     Dosage: UNK
     Dates: start: 20161121, end: 20161211
  21. DEXAMETHASONE. [Concomitant]
     Active Substance: DEXAMETHASONE
     Dosage: 40 MG, UNK
     Dates: start: 20161128
  22. CARFILZOMIB [Suspect]
     Active Substance: CARFILZOMIB
     Dosage: 23 MG/M2, UNK
     Route: 041
     Dates: start: 20161006, end: 20161007
  23. CARFILZOMIB [Suspect]
     Active Substance: CARFILZOMIB
     Dosage: 23 MG/M2, UNK
     Route: 041
     Dates: start: 20161205, end: 20161206
  24. LENALIDOMIDE [Concomitant]
     Active Substance: LENALIDOMIDE
     Dosage: UNK
     Dates: start: 20161219, end: 20170108
  25. DEXAMETHASONE. [Concomitant]
     Active Substance: DEXAMETHASONE
     Dosage: 40 MG, UNK
     Dates: start: 20160929
  26. DEXAMETHASONE. [Concomitant]
     Active Substance: DEXAMETHASONE
     Dosage: 20 MG, UNK
     Dates: start: 20161019
  27. DEXAMETHASONE. [Concomitant]
     Active Substance: DEXAMETHASONE
     Dosage: 40 MG, UNK
     Dates: start: 20161024
  28. DEXAMETHASONE. [Concomitant]
     Active Substance: DEXAMETHASONE
     Dosage: 40 MG, UNK
     Dates: start: 20161121
  29. DEXAMETHASONE. [Concomitant]
     Active Substance: DEXAMETHASONE
     Dosage: 40 MG, UNK
     Dates: start: 20170104
  30. CARFILZOMIB [Suspect]
     Active Substance: CARFILZOMIB
     Dosage: 23 MG/M2, UNK
     Route: 041
     Dates: start: 20161031, end: 20161101
  31. LENALIDOMIDE [Concomitant]
     Active Substance: LENALIDOMIDE
     Dosage: UNK
     Dates: start: 20161024, end: 20161113
  32. DEXAMETHASONE. [Concomitant]
     Active Substance: DEXAMETHASONE
     Dosage: 20 MG, UNK
     Dates: start: 20161114

REACTIONS (3)
  - Hyperkalaemia [Not Recovered/Not Resolved]
  - Chronic kidney disease [Not Recovered/Not Resolved]
  - Ventricular fibrillation [Fatal]

NARRATIVE: CASE EVENT DATE: 20170104
